FAERS Safety Report 8917921 (Version 1)
Quarter: 2012Q4

REPORT INFORMATION
  Report Type: 
  Country: US (occurrence: US)
  Receive Date: 20121120
  Receipt Date: 20121120
  Transmission Date: 20130627
  Serious: Yes (Death)
  Sender: FDA-Public Use
  Company Number: CHPA2012US023824

PATIENT
  Age: 84 Year
  Sex: Female

DRUGS (3)
  1. MYOFLEX ANALGESIC CREME [Suspect]
     Indication: BACK PAIN
     Dosage: Unk, as needed
     Route: 061
  2. ANTIHYPERTENSIVE DRUGS [Concomitant]
     Indication: BLOOD PRESSURE ABNORMAL
  3. PROVENTIL [Concomitant]
     Indication: ASTHMA

REACTIONS (1)
  - Death [Fatal]
